FAERS Safety Report 7603689-9 (Version None)
Quarter: 2011Q3

REPORT INFORMATION
  Report Type: 
  Country: None (occurrence: None)
  Receive Date: 20110712
  Receipt Date: 20110707
  Transmission Date: 20111222
  Serious: Yes (Other)
  Sender: FDA-Public Use
  Company Number: US-PFIZER INC-2011154501

PATIENT
  Sex: Male
  Weight: 89.3 kg

DRUGS (1)
  1. PHENYTOIN [Suspect]
     Indication: GRAND MAL CONVULSION
     Dosage: 200MG IN MORNING, 300 MG NIGHT
     Dates: end: 19960101

REACTIONS (1)
  - GRAND MAL CONVULSION [None]
